FAERS Safety Report 8557223 (Version 2)
Quarter: 2013Q4

REPORT INFORMATION
  Report Type: Spontaneous
  Country: DE (occurrence: None)
  Receive Date: 20120504
  Receipt Date: 20131015
  Transmission Date: 20140711
  Serious: Yes (Other)
  Sender: FDA-Public Use
  Company Number: NGX_01023_2012

PATIENT
  Age: 49 Year
  Sex: Female
  Weight: 71 kg

DRUGS (7)
  1. QUTENZA [Suspect]
     Indication: COMPLEX REGIONAL PAIN SYNDROME
     Dosage: (0.5 DF, [PATCH, APPLIED TO HAND] TOPICAL)
     Route: 061
     Dates: start: 20111128, end: 20111128
  2. CLONIDINE TRANSDERMAL SYSTEM [Concomitant]
  3. LIDOCAINE [Concomitant]
  4. NOVAMIN /06276704/ [Concomitant]
  5. LIDOCAIN /00033401/ [Concomitant]
  6. METAMIZOL /06276704/ [Concomitant]
  7. LOCAL COOLING [Concomitant]

REACTIONS (8)
  - Application site vesicles [None]
  - Application site pain [None]
  - Drug tolerance decreased [None]
  - No therapeutic response [None]
  - Temperature intolerance [None]
  - Oedema peripheral [None]
  - Adverse event [None]
  - Drug ineffective [None]
